FAERS Safety Report 16908488 (Version 1)
Quarter: 2019Q4

REPORT INFORMATION
  Report Type: Spontaneous
  Country: FR (occurrence: FR)
  Receive Date: 20191011
  Receipt Date: 20191011
  Transmission Date: 20200122
  Serious: Yes (Hospitalization)
  Sender: FDA-Public Use
  Company Number: FR-PFIZER INC-2019435603

PATIENT
  Age: 83 Year
  Sex: Female

DRUGS (2)
  1. TAZOCILLINE [Suspect]
     Active Substance: PIPERACILLIN SODIUM\TAZOBACTAM SODIUM
     Indication: INFECTION
     Dosage: 12 G, UNK
     Route: 042
     Dates: start: 20190910
  2. LOVENOX [Suspect]
     Active Substance: ENOXAPARIN SODIUM
     Indication: ARTERIAL THROMBOSIS
     Dosage: 2 DF, UNK
     Route: 058
     Dates: start: 20190909

REACTIONS (1)
  - Thrombocytosis [Recovering/Resolving]

NARRATIVE: CASE EVENT DATE: 20190915
